FAERS Safety Report 4865616-7 (Version None)
Quarter: 2005Q4

REPORT INFORMATION
  Report Type: 
  Country: None (occurrence: None)
  Receive Date: 20051220
  Receipt Date: 20051208
  Transmission Date: 20060501
  Serious: Yes (Other)
  Sender: FDA-Public Use
  Company Number: 2005166979

PATIENT
  Age: 57 Year
  Sex: Female
  Weight: 68.0396 kg

DRUGS (17)
  1. LYRICA [Suspect]
     Indication: CONVULSION
     Dates: start: 20051208
  2. LYRICA [Suspect]
     Indication: NEUROPATHY
     Dates: start: 20051208
  3. INSULIN [Concomitant]
  4. XANAX [Concomitant]
  5. BENICAR [Concomitant]
  6. PREMARIN [Concomitant]
  7. TRILEPTAL [Concomitant]
  8. ZONEGRAN [Concomitant]
  9. ADVAIR DISKUS 100/50 [Concomitant]
  10. ALUPENT [Concomitant]
  11. PROVENTIL HFA  SCHERING-PLOUGH  (SALBUTAMOL) [Concomitant]
  12. ASTELIN [Concomitant]
  13. LIDODERM PATCH (LIDOCAINE HYDROCHLORIDE) [Concomitant]
  14. NEXIUM [Concomitant]
  15. REGLAN [Concomitant]
  16. LESCOL [Concomitant]
  17. INSULIN, REGULAR (INSULIN) [Concomitant]

REACTIONS (4)
  - ABNORMAL BEHAVIOUR [None]
  - CRYING [None]
  - NEUROSIS [None]
  - SCREAMING [None]
